FAERS Safety Report 5319571-6 (Version None)
Quarter: 2007Q2

REPORT INFORMATION
  Report Type: 
  Country: None (occurrence: None)
  Receive Date: 20070508
  Receipt Date: 20070426
  Transmission Date: 20071010
  Serious: Yes (Other)
  Sender: FDA-Public Use
  Company Number: JP-PFIZER INC-2007034229

PATIENT
  Age: 24 Year
  Sex: Female

DRUGS (3)
  1. CABASER [Suspect]
     Route: 048
  2. TRANSAMIN [Suspect]
  3. ADONA [Suspect]

REACTIONS (1)
  - DEAFNESS [None]
